FAERS Safety Report 4868748-2 (Version None)
Quarter: 2005Q4

REPORT INFORMATION
  Report Type: 
  Country: None (occurrence: None)
  Receive Date: 20051223
  Receipt Date: 20051213
  Transmission Date: 20060501
  Serious: Yes (Hospitalization)
  Sender: FDA-Public Use
  Company Number: 2005168234

PATIENT
  Age: 79 Year
  Sex: Male

DRUGS (10)
  1. ATARAX [Suspect]
     Indication: ANXIETY
     Dosage: ORAL
     Route: 048
     Dates: start: 20050614, end: 20050617
  2. TAHOR (ATORVASTATIN) [Suspect]
     Indication: HYPERCHOLESTEROLAEMIA
     Dosage: 20 MG (1 D) ORAL
     Route: 048
  3. PROSCAR [Concomitant]
  4. ZESTRIL [Concomitant]
  5. ART 50 (DACEREIN) [Concomitant]
  6. ACETYLSALICYLATE LYSINE (ACETYLSALICYLATE LYSINE) [Concomitant]
  7. BROMAZEPAM (BROMAZEPAM) [Suspect]
     Indication: ANXIETY
     Dosage: ORAL
     Route: 048
     Dates: start: 20050618, end: 20050618
  8. MOBIC [Suspect]
     Indication: BACK PAIN
     Dosage: ORAL
     Route: 048
     Dates: start: 20050618, end: 20050619
  9. RABEPRAZOLE (RABEPRAZOLE) [Suspect]
     Indication: OESOPHAGITIS
     Dosage: ORAL
     Route: 048
  10. ACEBUTOLOL HCL [Suspect]
     Indication: ESSENTIAL HYPERTENSION
     Dosage: ORAL
     Route: 048

REACTIONS (1)
  - ERYTHEMA MULTIFORME [None]
